FAERS Safety Report 9635141 (Version 3)
Quarter: 2013Q4

REPORT INFORMATION
  Report Type: Report from Study
  Country: JP (occurrence: JP)
  Receive Date: 20131021
  Receipt Date: 20131203
  Transmission Date: 20140711
  Serious: Yes (Hospitalization)
  Sender: FDA-Public Use
  Company Number: JP-UCBSA-100519

PATIENT
  Age: 67 Year
  Sex: Female
  Weight: 53.7 kg

DRUGS (7)
  1. CIMZIA [Suspect]
     Indication: RHEUMATOID ARTHRITIS
     Dosage: 200 MG SYRINGE; LOADING DOSE
     Route: 058
     Dates: start: 20130808, end: 20130917
  2. RHEUMATREX [Suspect]
     Indication: RHEUMATOID ARTHRITIS
     Dosage: DAILY DOSE: 12 MG X 1/WEEK
     Route: 048
     Dates: start: 20130802, end: 20130917
  3. RHEUMATREX [Suspect]
     Indication: RHEUMATOID ARTHRITIS
     Dosage: DAILY DOSE: 10 MG X 1/WEEK
     Route: 048
     Dates: start: 201307, end: 2013
  4. RHEUMATREX [Suspect]
     Indication: RHEUMATOID ARTHRITIS
     Dosage: DAILY DOSE: 8 MG X 1/WEEK (START DATE: BEFORE CERTOLIZUMAB PEGOL ADMINISTRATION)
     Route: 048
  5. GASTER D [Concomitant]
     Dosage: DAILY DOSE: 40 MG (START DATE: BEFORE CERTOLIZUMAB PEGOL ADMINISTRATION)
     Route: 048
     Dates: end: 20130917
  6. VOLTAREN SR [Concomitant]
     Dosage: DAILY DOSE: 75 MG (START DATE: BEFORE CERTOLIZUMAB PEGOL ADMINISTRATION)
     Route: 048
     Dates: end: 20130917
  7. MUCOSTA [Concomitant]
     Dosage: DAILY DOSE: 200 MG (START DATE: BEFORE CERTOLIZUMAB PEGOL ADMINISTRATION)
     Route: 048
     Dates: end: 20130917

REACTIONS (2)
  - Interstitial lung disease [Recovering/Resolving]
  - Hepatic function abnormal [Recovered/Resolved]
